FAERS Safety Report 7875610-X (Version None)
Quarter: 2011Q4

REPORT INFORMATION
  Report Type: 
  Country: None (occurrence: None)
  Receive Date: 20111031
  Receipt Date: 20110927
  Transmission Date: 20120403
  Serious: Yes (Hospitalization)
  Sender: FDA-Public Use
  Company Number: US-ROCHE-799637

PATIENT
  Sex: Female

DRUGS (4)
  1. TARCEVA [Suspect]
     Indication: LUNG CARCINOMA CELL TYPE UNSPECIFIED STAGE 0
     Dosage: FREQUENCY: QD. ON HOLD ONE WEEK.
     Route: 048
     Dates: start: 20110525, end: 20110817
  2. TARCEVA [Suspect]
     Dosage: FREQUENCY: QD. LOT:  SS0015, EXP.DT. 31-MAY-2013.
     Route: 048
  3. TARCEVA [Suspect]
     Dosage: FREQUENCY: QD. LOT: SS0020, EXP.DT. 31-AUG-2013.
     Route: 048
  4. TARCEVA [Suspect]
     Dosage: FREQUENCY: QD. LOT: SS0018, EXP.DT. 31-AUG-2013.
     Route: 048

REACTIONS (17)
  - HOSPITALISATION [None]
  - MYALGIA [None]
  - BLISTER [None]
  - ARTHRALGIA [None]
  - DIARRHOEA [None]
  - NASAL DISCOMFORT [None]
  - FLATULENCE [None]
  - ERYTHEMA [None]
  - RASH [None]
  - EYE PAIN [None]
  - DYSPNOEA [None]
  - PRURITUS [None]
  - SKIN ULCER [None]
  - EYE PRURITUS [None]
  - EAR DISCOMFORT [None]
  - EAR PRURITUS [None]
  - BONE PAIN [None]
